FAERS Safety Report 7171283-2 (Version None)
Quarter: 2010Q4

REPORT INFORMATION
  Report Type: 
  Country: None (occurrence: None)
  Receive Date: 20101123
  Receipt Date: 20101018
  Transmission Date: 20110411
  Serious: No
  Sender: FDA-Public Use
  Company Number: 016361

PATIENT
  Sex: Female
  Weight: 99.8 kg

DRUGS (2)
  1. CIMZIA [Suspect]
     Indication: CROHN'S DISEASE
     Dosage: 400 MG 1X/2 WEEKS, SUBCUTANEOUS
     Route: 058
     Dates: start: 20091001
  2. ASACOL [Concomitant]

REACTIONS (8)
  - ABDOMINAL PAIN [None]
  - ABDOMINAL PAIN LOWER [None]
  - APHAGIA [None]
  - INCREASED UPPER AIRWAY SECRETION [None]
  - INJECTION SITE ERYTHEMA [None]
  - LIP DRY [None]
  - NAUSEA [None]
  - RHINORRHOEA [None]
